FAERS Safety Report 12847789 (Version 1)
Quarter: 2016Q4

REPORT INFORMATION
  Report Type: Spontaneous
  Country: US (occurrence: US)
  Receive Date: 20161013
  Receipt Date: 20161013
  Transmission Date: 20170207
  Serious: Yes (Hospitalization)
  Sender: FDA-Public Use
  Company Number: None

PATIENT
  Age: 67 Year
  Sex: Male
  Weight: 99 kg

DRUGS (12)
  1. BYSTOLIC [Concomitant]
     Active Substance: NEBIVOLOL HYDROCHLORIDE
  2. LISINOPRIL. [Suspect]
     Active Substance: LISINOPRIL
     Indication: HYPERTENSION
     Dosage: ?          QUANTITY:1 TABLET(S);?
     Route: 048
  3. ATORVASTATIN [Concomitant]
     Active Substance: ATORVASTATIN
  4. ZETIA [Concomitant]
     Active Substance: EZETIMIBE
  5. METFORMIN [Concomitant]
     Active Substance: METFORMIN HYDROCHLORIDE
  6. ONGLYZA [Concomitant]
     Active Substance: SAXAGLIPTIN HYDROCHLORIDE
  7. INVOKANA [Concomitant]
     Active Substance: CANAGLIFLOZIN
  8. SCHIFF MOVE FREE [Concomitant]
     Active Substance: CHONDROITIN SULFATE A\GLUCOSAMINE
  9. LEVOTHYROXINE. [Concomitant]
     Active Substance: LEVOTHYROXINE
  10. ASPIRIN. [Concomitant]
     Active Substance: ASPIRIN
  11. GLIPIZIDE. [Concomitant]
     Active Substance: GLIPIZIDE
  12. CENTRUM MUTIVITAMIN [Concomitant]

REACTIONS (2)
  - Swollen tongue [None]
  - Pharyngeal oedema [None]

NARRATIVE: CASE EVENT DATE: 20161011
